FAERS Safety Report 7627961-1 (Version None)
Quarter: 2011Q3

REPORT INFORMATION
  Report Type: 
  Country: None (occurrence: None)
  Receive Date: 20110722
  Receipt Date: 20110713
  Transmission Date: 20111222
  Serious: Yes (Other)
  Sender: FDA-Public Use
  Company Number: US-BIOGENIDEC-2011BI000417

PATIENT
  Age: 29 Year
  Sex: Female

DRUGS (6)
  1. MACROBID [Concomitant]
     Dates: start: 20101201, end: 20101208
  2. CRANBERRY PILL [Concomitant]
  3. PRENATAL VITAMINS [Concomitant]
  4. VITAMIN B-12 [Concomitant]
  5. TYSABRI [Suspect]
     Indication: MULTIPLE SCLEROSIS
     Route: 042
     Dates: start: 20080429, end: 20101011
  6. VITAMIN D [Concomitant]

REACTIONS (2)
  - PREGNANCY [None]
  - ARRESTED LABOUR [None]
